FAERS Safety Report 10732933 (Version 1)
Quarter: 2015Q1

REPORT INFORMATION
  Report Type: Spontaneous
  Country: GB (occurrence: None)
  Receive Date: 20150120
  Receipt Date: 20150120
  Transmission Date: 20150721
  Serious: Yes (Hospitalization)
  Sender: FDA-Public Use
  Company Number: INT_00620_2015

PATIENT
  Age: 24 Month
  Sex: Male

DRUGS (11)
  1. CISPLATIN (CISPLATIN) (HQ SPECIALTY) [Suspect]
     Active Substance: CISPLATIN
     Indication: NEUROBLASTOMA
     Dosage: DF
  2. MELPHALAN [Concomitant]
     Active Substance: MELPHALAN
  3. VINCRISTINE (VINCRISTINE) [Suspect]
     Active Substance: VINCRISTINE
     Indication: NEUROBLASTOMA
     Dosage: DF
  4. RADIOTHERAPY [Concomitant]
     Active Substance: RADIATION THERAPY
  5. CYCLOPHOSPHAMIDE. [Suspect]
     Active Substance: CYCLOPHOSPHAMIDE
     Indication: NEUROBLASTOMA
     Dosage: DF
  6. HYDROCORTISONE. [Concomitant]
     Active Substance: HYDROCORTISONE
  7. BUSULPHAN [Concomitant]
     Active Substance: BUSULFAN
  8. 13-CIS-RETINOIC ACID [Concomitant]
     Active Substance: ISOTRETINOIN
  9. CARBOPLATIN. [Suspect]
     Active Substance: CARBOPLATIN
     Indication: NEUROBLASTOMA
     Dosage: DF
  10. ETOPOSIDE. [Suspect]
     Active Substance: ETOPOSIDE
     Indication: NEUROBLASTOMA
     Dosage: DF
  11. FLUDROCORTISONE [Concomitant]
     Active Substance: FLUDROCORTISONE

REACTIONS (5)
  - Renal tubular disorder [None]
  - Febrile neutropenia [None]
  - Hyponatraemia [None]
  - Hyperkalaemia [None]
  - Electrolyte imbalance [None]
